FAERS Safety Report 16823901 (Version 1)
Quarter: 2019Q3

REPORT INFORMATION
  Report Type: Report from Study
  Country: US (occurrence: US)
  Receive Date: 20190918
  Receipt Date: 20190918
  Transmission Date: 20191005
  Serious: Yes (Hospitalization)
  Sender: FDA-Public Use
  Company Number: US-ADAMAS PHARMA, LLC-2019ADA01656

PATIENT
  Age: 71 Year
  Sex: Male
  Weight: 107.94 kg

DRUGS (23)
  1. CARBIDOPA/LEVODOPA ER [Concomitant]
     Active Substance: CARBIDOPA\LEVODOPA
  2. SUPER B-50 COMPLEX [Concomitant]
  3. GOCOVRI [Suspect]
     Active Substance: AMANTADINE
     Dosage: 137 MG, 1X/DAY AT BEDTIME
     Route: 048
     Dates: start: 201903, end: 2019
  4. GOCOVRI [Suspect]
     Active Substance: AMANTADINE
     Dosage: 137 MG, 1X/DAY AT BEDTIME
     Route: 048
     Dates: start: 2019
  5. SEROQUEL [Concomitant]
     Active Substance: QUETIAPINE FUMARATE
  6. CENTRUM MEN [Concomitant]
  7. FOLIC ACID. [Concomitant]
     Active Substance: FOLIC ACID
  8. GOCOVRI [Suspect]
     Active Substance: AMANTADINE
     Dosage: 274 MG, 1X/DAY AT BEDTIME
     Route: 048
     Dates: start: 20190318, end: 201903
  9. VITAMIN D [Concomitant]
     Active Substance: VITAMIN D NOS
  10. KEPPRA [Suspect]
     Active Substance: LEVETIRACETAM
     Dosage: UNK
     Dates: start: 201908, end: 201908
  11. ARMOUR THYROID [Concomitant]
     Active Substance: THYROID, PORCINE
  12. CARBIDOPA/LEVODOPA [Concomitant]
     Active Substance: CARBIDOPA\LEVODOPA
  13. OCUVITE WITH LUTEIN [Concomitant]
  14. UNSPECIFIED PROSTATE SUPPLEMENT [Concomitant]
  15. VITAMIN C [Concomitant]
     Active Substance: ASCORBIC ACID
  16. ASPIRIN. [Concomitant]
     Active Substance: ASPIRIN
  17. FINASTERIDE. [Concomitant]
     Active Substance: FINASTERIDE
  18. FIBER [Concomitant]
     Active Substance: PSYLLIUM HUSK
  19. NORTHERA [Concomitant]
     Active Substance: DROXIDOPA
  20. FISH OIL [Concomitant]
     Active Substance: FISH OIL
  21. GOCOVRI [Suspect]
     Active Substance: AMANTADINE
     Indication: DYSKINESIA
     Dosage: 137 MG, 1X/DAY AT BEDTIME
     Route: 048
     Dates: start: 20190311, end: 20190317
  22. CELEXA [Concomitant]
     Active Substance: CITALOPRAM HYDROBROMIDE
  23. RANITIDINE. [Concomitant]
     Active Substance: RANITIDINE

REACTIONS (7)
  - Burns third degree [Unknown]
  - Burns second degree [Unknown]
  - Loss of consciousness [Recovered/Resolved]
  - Seizure [Unknown]
  - Confusional state [Unknown]
  - Heat stroke [Unknown]
  - Fall [Not Recovered/Not Resolved]

NARRATIVE: CASE EVENT DATE: 201903
